FAERS Safety Report 25581849 (Version 2)
Quarter: 2025Q3

REPORT INFORMATION
  Report Type: Spontaneous
  Country: US (occurrence: US)
  Receive Date: 20250719
  Receipt Date: 20250814
  Transmission Date: 20251020
  Serious: No
  Sender: HETERO
  Company Number: US-HETERO-HET2025US04124

PATIENT
  Age: 4 Year
  Sex: Male

DRUGS (1)
  1. SAPROPTERIN [Suspect]
     Active Substance: SAPROPTERIN
     Indication: Product used for unknown indication
     Route: 048

REACTIONS (3)
  - Taste disorder [Unknown]
  - Product colour issue [Unknown]
  - Product physical consistency issue [Unknown]
